FAERS Safety Report 5843620-X (Version None)
Quarter: 2008Q3

REPORT INFORMATION
  Report Type: 
  Country: None (occurrence: None)
  Receive Date: 20080813
  Receipt Date: 20080707
  Transmission Date: 20090109
  Serious: No
  Sender: FDA-Public Use
  Company Number: A0736253A

PATIENT
  Sex: Male
  Weight: 136.4 kg

DRUGS (2)
  1. COREG CR [Suspect]
     Indication: ARRHYTHMIA
     Route: 048
     Dates: start: 20080401
  2. AVANDAMET [Concomitant]

REACTIONS (1)
  - DRUG INEFFECTIVE [None]
